FAERS Safety Report 24846246 (Version 1)
Quarter: 2025Q1

REPORT INFORMATION
  Report Type: Spontaneous
  Country: CA (occurrence: CA)
  Receive Date: 20250115
  Receipt Date: 20250115
  Transmission Date: 20250409
  Serious: Yes (Other)
  Sender: FRESENIUS KABI
  Company Number: CA-FreseniusKabi-FK202500348

PATIENT
  Age: 41 Year
  Sex: Male

DRUGS (21)
  1. ETOPOSIDE [Suspect]
     Active Substance: ETOPOSIDE
     Indication: Parathyroid tumour malignant
  2. ETOPOSIDE [Suspect]
     Active Substance: ETOPOSIDE
     Indication: Lung neoplasm
  3. ETOPOSIDE [Suspect]
     Active Substance: ETOPOSIDE
     Indication: Hepatic cancer
  4. ZOLEDRONIC ACID [Suspect]
     Active Substance: ZOLEDRONIC ACID
     Indication: Parathyroid tumour malignant
  5. ZOLEDRONIC ACID [Suspect]
     Active Substance: ZOLEDRONIC ACID
     Indication: Lung neoplasm
  6. ZOLEDRONIC ACID [Suspect]
     Active Substance: ZOLEDRONIC ACID
     Indication: Hepatic cancer
  7. CISPLATIN [Suspect]
     Active Substance: CISPLATIN
     Indication: Parathyroid tumour
     Route: 042
  8. CISPLATIN [Suspect]
     Active Substance: CISPLATIN
     Indication: Lung neoplasm
  9. CISPLATIN [Suspect]
     Active Substance: CISPLATIN
     Indication: Hepatic cancer
  10. CAPECITABINE [Suspect]
     Active Substance: CAPECITABINE
     Indication: Parathyroid tumour
  11. CAPECITABINE [Suspect]
     Active Substance: CAPECITABINE
     Indication: Lung neoplasm
  12. CAPECITABINE [Suspect]
     Active Substance: CAPECITABINE
     Indication: Hepatic cancer
  13. DENOSUMAB [Suspect]
     Active Substance: DENOSUMAB
     Indication: Parathyroid tumour
  14. DENOSUMAB [Suspect]
     Active Substance: DENOSUMAB
     Indication: Lung neoplasm
  15. DENOSUMAB [Suspect]
     Active Substance: DENOSUMAB
     Indication: Hepatic cancer
  16. NEXAVAR [Suspect]
     Active Substance: SORAFENIB
     Indication: Parathyroid tumour
  17. NEXAVAR [Suspect]
     Active Substance: SORAFENIB
     Indication: Lung neoplasm
  18. NEXAVAR [Suspect]
     Active Substance: SORAFENIB
     Indication: Hepatic cancer
  19. TEMOZOLOMIDE [Suspect]
     Active Substance: TEMOZOLOMIDE
     Indication: Parathyroid tumour
  20. TEMOZOLOMIDE [Suspect]
     Active Substance: TEMOZOLOMIDE
     Indication: Lung neoplasm
  21. TEMOZOLOMIDE [Suspect]
     Active Substance: TEMOZOLOMIDE
     Indication: Hepatic cancer

REACTIONS (7)
  - Blood bilirubin increased [Unknown]
  - Diarrhoea [Unknown]
  - Hepatic encephalopathy [Unknown]
  - Metastases to liver [Unknown]
  - Metastases to lymph nodes [Unknown]
  - Metastases to peritoneum [Unknown]
  - Parathyroid tumour malignant [Unknown]
